FAERS Safety Report 22064319 (Version 1)
Quarter: 2023Q1

REPORT INFORMATION
  Report Type: Spontaneous
  Country: US (occurrence: US)
  Receive Date: 20230306
  Receipt Date: 20230306
  Transmission Date: 20230418
  Serious: Yes (Other)
  Sender: FDA-Public Use
  Company Number: US-PFIZER INC-PV202300040118

PATIENT
  Age: 48 Year
  Sex: Female

DRUGS (2)
  1. BRAFTOVI [Suspect]
     Active Substance: ENCORAFENIB
     Indication: Oesophageal carcinoma
     Dosage: UNK
  2. MEKTOVI [Suspect]
     Active Substance: BINIMETINIB
     Indication: Oesophageal carcinoma
     Dosage: UNK

REACTIONS (3)
  - Cerebrovascular accident [Unknown]
  - Asphyxia [Not Recovered/Not Resolved]
  - Aphasia [Not Recovered/Not Resolved]
